FAERS Safety Report 9704290 (Version 1)
Quarter: 2013Q4

REPORT INFORMATION
  Report Type: Spontaneous
  Country: IT (occurrence: IT)
  Receive Date: 20131122
  Receipt Date: 20131122
  Transmission Date: 20140711
  Serious: Yes (Other)
  Sender: FDA-Public Use
  Company Number: IT-TEVA-444132ISR

PATIENT
  Age: 62 Year
  Sex: Female

DRUGS (1)
  1. SOTALOL [Suspect]
     Dosage: 160 MILLIGRAM DAILY;
     Route: 048

REACTIONS (4)
  - Hypertensive crisis [Unknown]
  - Tachycardia [Unknown]
  - Nausea [Unknown]
  - Hyperhidrosis [Unknown]
